FAERS Safety Report 8911899 (Version 1)
Quarter: 2012Q4

REPORT INFORMATION
  Report Type: 
  Country: PT (occurrence: PT)
  Receive Date: 20121115
  Receipt Date: 20121115
  Transmission Date: 20130627
  Serious: Yes (Life-Threatening, Hospitalization, Disabling)
  Sender: FDA-Public Use
  Company Number: PT-B.I. PHARMACEUTICALS,INC./RIDGEFIELD-2012-BI-00003PO

PATIENT
  Age: 82 Year
  Sex: Female

DRUGS (6)
  1. PRADAXA [Suspect]
     Dosage: 220 mg
  2. MICARDIS PLUS [Suspect]
     Dosage: 80/12.5mg
  3. VASTAREL [Concomitant]
  4. DAFLON [Concomitant]
  5. PRAVASTATIN [Concomitant]
  6. CALCIUM WYEHT [Concomitant]

REACTIONS (13)
  - Cerebrovascular disorder [Recovered/Resolved with Sequelae]
  - Ischaemic stroke [Recovered/Resolved with Sequelae]
  - Depressed level of consciousness [Recovered/Resolved with Sequelae]
  - Altered state of consciousness [Recovered/Resolved with Sequelae]
  - Abnormal behaviour [Recovered/Resolved with Sequelae]
  - Somnolence [Recovered/Resolved with Sequelae]
  - Depressed level of consciousness [Recovered/Resolved with Sequelae]
  - Gaze palsy [Recovered/Resolved with Sequelae]
  - Monoplegia [Recovered/Resolved with Sequelae]
  - Paresis [Recovered/Resolved with Sequelae]
  - Areflexia [Recovered/Resolved with Sequelae]
  - Hyperpyrexia [Recovered/Resolved with Sequelae]
  - Urinary retention [Recovered/Resolved with Sequelae]
